FAERS Safety Report 23257108 (Version 2)
Quarter: 2023Q4

REPORT INFORMATION
  Report Type: Spontaneous
  Country: IT (occurrence: IT)
  Receive Date: 20231204
  Receipt Date: 20231222
  Transmission Date: 20240110
  Serious: Yes (Hospitalization, Other)
  Sender: FDA-Public Use
  Company Number: IT-MINISAL02-956177

PATIENT
  Age: 57 Year
  Sex: Male

DRUGS (2)
  1. OLANZAPINE [Suspect]
     Active Substance: OLANZAPINE
     Indication: Product used for unknown indication
     Dosage: 15 MILLIGRAM TOTAL
     Route: 048
     Dates: start: 20231113, end: 20231113
  2. QUETIAPINE [Suspect]
     Active Substance: QUETIAPINE
     Indication: Product used for unknown indication
     Dosage: 650 MILLIGRAM TOTAL
     Route: 048
     Dates: start: 20231113, end: 20231113

REACTIONS (4)
  - Drug abuse [Unknown]
  - Photophobia [Recovering/Resolving]
  - Miosis [Unknown]
  - Treatment noncompliance [Unknown]

NARRATIVE: CASE EVENT DATE: 20231113
